FAERS Safety Report 6297192-9 (Version None)
Quarter: 2009Q3

REPORT INFORMATION
  Report Type: 
  Country: None (occurrence: None)
  Receive Date: 20090804
  Receipt Date: 20090804
  Transmission Date: 20100115
  Serious: No
  Sender: FDA-Public Use
  Company Number: None

PATIENT
  Age: 64 Year
  Sex: Male
  Weight: 89.8122 kg

DRUGS (2)
  1. POLYMYXIN B SULFATES AND NEOMYCIN AND DEXAMETHASONE OPHTHALMIC OINTMEN [Suspect]
     Indication: ACNE
     Dosage: 1/4^ LINE TO L + R LOWER EYELID; TWICE DAILY; APPLY TO EYELID
     Route: 047
     Dates: start: 20090624, end: 20090626
  2. POLYMYXIN B SULFATES AND NEOMYCIN AND DEXAMETHASONE OPHTHALMIC OINTMEN [Suspect]
     Indication: EYELID DISORDER
     Dosage: 1/4^ LINE TO L + R LOWER EYELID; TWICE DAILY; APPLY TO EYELID
     Route: 047
     Dates: start: 20090624, end: 20090626

REACTIONS (2)
  - EYELID OEDEMA [None]
  - EYELIDS PRURITUS [None]
